FAERS Safety Report 21153187 (Version 1)
Quarter: 2022Q3

REPORT INFORMATION
  Report Type: Spontaneous
  Country: CN (occurrence: CN)
  Receive Date: 20220731
  Receipt Date: 20220731
  Transmission Date: 20221027
  Serious: No
  Sender: FDA-Public Use
  Company Number: CN-ALKEM LABORATORIES LIMITED-CN-ALKEM-2022-03443

PATIENT
  Age: 8 Year
  Sex: Female

DRUGS (3)
  1. LAMOTRIGINE [Suspect]
     Active Substance: LAMOTRIGINE
     Indication: Petit mal epilepsy
     Dosage: 6.25 MILLIGRAM/KILOGRAM, QD
     Route: 065
  2. LEVETIRACETAM [Suspect]
     Active Substance: LEVETIRACETAM
     Indication: Petit mal epilepsy
     Dosage: 37.50 MILLIGRAM/KILOGRAM, QD
     Route: 065
  3. VALPROIC ACID [Concomitant]
     Active Substance: VALPROIC ACID
     Indication: Petit mal epilepsy
     Dosage: 31.25 MILLIGRAM/KILOGRAM, QD
     Route: 065

REACTIONS (1)
  - Drug ineffective [Not Recovered/Not Resolved]
